FAERS Safety Report 5002992-9 (Version None)
Quarter: 2006Q2

REPORT INFORMATION
  Report Type: 
  Country: None (occurrence: None)
  Receive Date: 20060516
  Receipt Date: 20060130
  Transmission Date: 20061013
  Serious: Yes (Hospitalization)
  Sender: FDA-Public Use
  Company Number: FR-MERCK-0601FRA00107

PATIENT
  Age: 9 Year
  Sex: Male

DRUGS (1)
  1. SINGULAIR [Suspect]
     Indication: CONJUNCTIVITIS ALLERGIC
     Route: 048
     Dates: start: 20041201, end: 20051201

REACTIONS (3)
  - LEUKOCYTOCLASTIC VASCULITIS [None]
  - OFF LABEL USE [None]
  - VASCULITIS [None]
